FAERS Safety Report 5606797-7 (Version None)
Quarter: 2008Q1

REPORT INFORMATION
  Report Type: 
  Country: None (occurrence: None)
  Receive Date: 20080125
  Receipt Date: 20080110
  Transmission Date: 20080703
  Serious: Yes (Other)
  Sender: FDA-Public Use
  Company Number: US021500

PATIENT
  Age: 28 Year
  Sex: Female
  Weight: 58.9676 kg

DRUGS (5)
  1. PROVIGIL [Suspect]
     Indication: HYPERSOMNIA
     Dosage: 100 MG SAMPLES QAM ORAL
     Route: 048
     Dates: start: 20071015
  2. PROVIGIL [Suspect]
     Indication: MAJOR DEPRESSION
     Dosage: 100 MG SAMPLES QAM ORAL
     Route: 048
     Dates: start: 20071015
  3. PROVIGIL [Suspect]
     Indication: HYPERSOMNIA
     Dosage: DOSE REDUCED BY PATIENT PRIOR TO CONTACTING THE PHYSICIAN ORAL
     Route: 048
     Dates: end: 20071018
  4. PROVIGIL [Suspect]
     Indication: MAJOR DEPRESSION
     Dosage: DOSE REDUCED BY PATIENT PRIOR TO CONTACTING THE PHYSICIAN ORAL
     Route: 048
     Dates: end: 20071018
  5. CYMBALTA [Concomitant]

REACTIONS (2)
  - ANGIOEDEMA [None]
  - ORAL HERPES [None]
